FAERS Safety Report 14351779 (Version 2)
Quarter: 2018Q1

REPORT INFORMATION
  Report Type: Spontaneous
  Country: JP (occurrence: JP)
  Receive Date: 20180104
  Receipt Date: 20180220
  Transmission Date: 20180509
  Serious: Yes (Other)
  Sender: FDA-Public Use
  Company Number: JP-NOVOPROD-579945

PATIENT
  Age: 71 Year
  Sex: Male
  Weight: 64 kg

DRUGS (26)
  1. VICTOZA [Suspect]
     Active Substance: LIRAGLUTIDE
     Dosage: 0.6 MG, QD MORNING
     Route: 058
     Dates: start: 20141203
  2. TRESIBA CHU [Concomitant]
     Active Substance: INSULIN DEGLUDEC
     Dosage: 6 U, QD
     Route: 058
     Dates: start: 20140418
  3. RELIFEN [Concomitant]
     Active Substance: NABUMETONE
     Dosage: 400 MG, QD
     Route: 048
     Dates: end: 20160121
  4. VICTOZA [Suspect]
     Active Substance: LIRAGLUTIDE
     Dosage: 0.9 MG, QD MORNING
     Route: 058
     Dates: start: 20141211
  5. TRESIBA CHU [Concomitant]
     Active Substance: INSULIN DEGLUDEC
     Dosage: 20 U, QD
     Route: 058
     Dates: start: 20160314
  6. ZETIA [Concomitant]
     Active Substance: EZETIMIBE
     Dosage: 10 MG, QD
     Route: 048
  7. LANSOPRAZOLE. [Concomitant]
     Active Substance: LANSOPRAZOLE
     Dosage: 15 MG, QD
     Route: 048
     Dates: start: 20150427
  8. SEIBULE [Concomitant]
     Active Substance: MIGLITOL
     Indication: TYPE 2 DIABETES MELLITUS
     Dosage: 150 MG, QD
     Route: 048
     Dates: start: 20140418, end: 20141209
  9. TRESIBA CHU [Concomitant]
     Active Substance: INSULIN DEGLUDEC
     Dosage: 8 U, QD
     Route: 058
     Dates: start: 20140519
  10. TRESIBA CHU [Concomitant]
     Active Substance: INSULIN DEGLUDEC
     Dosage: 14 UNK, UNK
     Route: 058
     Dates: start: 20150507
  11. TRESIBA CHU [Concomitant]
     Active Substance: INSULIN DEGLUDEC
     Dosage: 18 U, QD
     Route: 058
     Dates: start: 20151105
  12. GLUCOBAY [Concomitant]
     Active Substance: ACARBOSE
     Indication: TYPE 2 DIABETES MELLITUS
     Dosage: 150 MG, QD
     Route: 048
     Dates: start: 20140327
  13. BISOPROLOL FUMARATE. [Concomitant]
     Active Substance: BISOPROLOL FUMARATE
     Dosage: 0.625 MG, QD
     Route: 048
     Dates: start: 20150427
  14. TRESIBA CHU [Concomitant]
     Active Substance: INSULIN DEGLUDEC
     Indication: TYPE 2 DIABETES MELLITUS
     Dosage: 8 U, QD
     Route: 058
     Dates: start: 20140327
  15. GLYCORAN [Concomitant]
     Active Substance: GLYCERIN
     Indication: TYPE 2 DIABETES MELLITUS
     Dosage: 750 MG, QD
     Route: 048
     Dates: end: 20150506
  16. OLMETEC [Concomitant]
     Active Substance: OLMESARTAN MEDOXOMIL
     Dosage: 20 MG, QD
     Route: 048
  17. COMPLAVIN [Concomitant]
     Active Substance: ASPIRIN\CLOPIDOGREL BISULFATE
     Dosage: 1 DF, QD
     Route: 048
     Dates: start: 20150323
  18. NIKORANMART [Concomitant]
     Active Substance: NICORANDIL
     Dosage: 15 MG, QD
     Route: 048
     Dates: start: 20150427
  19. LASIX [Concomitant]
     Active Substance: FUROSEMIDE
     Dosage: 10-120MG/DAY
     Route: 048
     Dates: start: 20150318
  20. REBAMIPIDE [Concomitant]
     Active Substance: REBAMIPIDE
     Dosage: 300 MG, QD
     Route: 048
     Dates: end: 20160121
  21. FLUITRAN [Concomitant]
     Active Substance: TRICHLORMETHIAZIDE
     Dosage: 1 MG, QD
     Route: 048
     Dates: start: 20150427, end: 20170129
  22. VICTOZA [Suspect]
     Active Substance: LIRAGLUTIDE
     Indication: TYPE 2 DIABETES MELLITUS
     Dosage: 0.3 MG, QD MORNING
     Route: 058
     Dates: start: 20141126
  23. TRESIBA CHU [Concomitant]
     Active Substance: INSULIN DEGLUDEC
     Dosage: 10 U, QD
     Route: 058
     Dates: start: 20140623
  24. ADALAT [Concomitant]
     Active Substance: NIFEDIPINE
     Dosage: 40 MG, QD
     Route: 048
  25. CRESTOR [Concomitant]
     Active Substance: ROSUVASTATIN CALCIUM
     Dosage: 2.5-5MG/DAY
     Route: 048
  26. KINEDAK [Concomitant]
     Active Substance: EPALRESTAT
     Dosage: 150 MG, QD
     Route: 048
     Dates: end: 20160121

REACTIONS (4)
  - Hyperuricaemia [Recovering/Resolving]
  - Hypoglycaemia [Recovered/Resolved]
  - Hypoglycaemia [Recovered/Resolved]
  - Chronic kidney disease [Recovering/Resolving]

NARRATIVE: CASE EVENT DATE: 20150611
